FAERS Safety Report 8554425-3 (Version None)
Quarter: 2012Q3

REPORT INFORMATION
  Report Type: 
  Country: None (occurrence: None)
  Receive Date: 20120731
  Receipt Date: 20120724
  Transmission Date: 20120928
  Serious: No
  Sender: FDA-Public Use
  Company Number: US-009507513-1207USA009345

PATIENT

DRUGS (1)
  1. EMEND [Suspect]
     Route: 042

REACTIONS (3)
  - SKIN BURNING SENSATION [None]
  - PAIN [None]
  - ADVERSE EVENT [None]
